FAERS Safety Report 7208744-3 (Version None)
Quarter: 2011Q1

REPORT INFORMATION
  Report Type: 
  Country: None (occurrence: None)
  Receive Date: 20110104
  Receipt Date: 20101229
  Transmission Date: 20110831
  Serious: Yes (Hospitalization)
  Sender: FDA-Public Use
  Company Number: US-PFIZER INC-2010181725

PATIENT
  Sex: Male

DRUGS (4)
  1. ATENOLOL [Suspect]
     Dosage: UNK
  2. PLAVIX [Suspect]
     Dosage: UNK
  3. LIPITOR [Suspect]
     Dosage: UNK
     Route: 055
  4. MAXAIR [Suspect]
     Indication: ASTHMA
     Dosage: 0.2 MG, 1 PUFF, 2X/DAY; INHALATION

REACTIONS (1)
  - PNEUMONIA [None]
